FAERS Safety Report 6683958-X (Version None)
Quarter: 2010Q2

REPORT INFORMATION
  Report Type: 
  Country: None (occurrence: None)
  Receive Date: 20100416
  Receipt Date: 20100405
  Transmission Date: 20101027
  Serious: Yes (Other)
  Sender: FDA-Public Use
  Company Number: BR-PFIZER INC-2009310974

PATIENT
  Age: 55 Year
  Sex: Female
  Weight: 62 kg

DRUGS (8)
  1. CHAMPIX [Suspect]
     Indication: SMOKING CESSATION THERAPY
     Dosage: 1 MG, EVERY TWELVE HOURS
     Route: 048
     Dates: start: 20091215, end: 20100120
  2. CHAMPIX [Suspect]
     Indication: TOBACCO USER
  3. DIAZEPAM [Concomitant]
     Dosage: UNK
  4. NEOZINE [Concomitant]
     Dosage: UNK
  5. DULCOLAX [Concomitant]
     Dosage: UNK
  6. PURAN T4 [Concomitant]
     Dosage: UNK
  7. CLONAZEPAM [Concomitant]
     Dosage: UNK
  8. FLUOXETINE [Concomitant]
     Indication: DEPRESSION
     Dosage: UNK

REACTIONS (5)
  - LIVER DISORDER [None]
  - NIGHT BLINDNESS [None]
  - PRESYNCOPE [None]
  - RASH MACULAR [None]
  - VAGINAL CYST [None]
